FAERS Safety Report 24745485 (Version 1)
Quarter: 2024Q4

REPORT INFORMATION
  Report Type: Report from Study
  Country: CA (occurrence: CA)
  Receive Date: 20241217
  Receipt Date: 20241217
  Transmission Date: 20250115
  Serious: Yes (Hospitalization)
  Sender: ABBVIE
  Company Number: CA-ABBVIE-6044006

PATIENT
  Age: 62 Year
  Sex: Male

DRUGS (1)
  1. RINVOQ [Suspect]
     Active Substance: UPADACITINIB
     Indication: Colitis ulcerative
     Route: 048
     Dates: start: 20241030, end: 20241121

REACTIONS (3)
  - Respiratory disorder [Unknown]
  - Drug hypersensitivity [Unknown]
  - Acne [Unknown]

NARRATIVE: CASE EVENT DATE: 20240101
